FAERS Safety Report 17728718 (Version 1)
Quarter: 2020Q2

REPORT INFORMATION
  Report Type: Report from Study
  Country: CO (occurrence: CO)
  Receive Date: 20200430
  Receipt Date: 20200430
  Transmission Date: 20200714
  Serious: Yes (Other)
  Sender: FDA-Public Use
  Company Number: CO-JNJFOC-20200206060

PATIENT
  Age: 74 Year
  Sex: Female
  Weight: 65 kg

DRUGS (3)
  1. STELARA [Suspect]
     Active Substance: USTEKINUMAB
     Route: 058
     Dates: start: 20190821
  2. STELARA [Suspect]
     Active Substance: USTEKINUMAB
     Indication: PSORIASIS
     Dosage: WEEK 0 ON 30-APR-2019, WEEK 4 ON 30-MAY-2019 AND EVERY 12 WEEKS THEREAFTER FROM 21-AUG-2019
     Route: 058
     Dates: start: 20190430, end: 20190430
  3. STELARA [Suspect]
     Active Substance: USTEKINUMAB
     Dosage: WEEK 0 ON 30-APR-2019, WEEK 4 ON 30-MAY-2019 AND EVERY 12 WEEKS THEREAFTER FROM 21-AUG-2019
     Route: 058
     Dates: start: 20190530, end: 20190530

REACTIONS (10)
  - Deafness [Not Recovered/Not Resolved]
  - Fall [Unknown]
  - Alopecia [Recovering/Resolving]
  - Pruritus [Recovering/Resolving]
  - Skin laceration [Recovering/Resolving]
  - Nail discolouration [Unknown]
  - Blindness [Not Recovered/Not Resolved]
  - Swelling face [Not Recovered/Not Resolved]
  - Swelling of eyelid [Not Recovered/Not Resolved]
  - Foreign body in eye [Not Recovered/Not Resolved]

NARRATIVE: CASE EVENT DATE: 201906
